FAERS Safety Report 24307180 (Version 1)
Quarter: 2024Q3

REPORT INFORMATION
  Report Type: Spontaneous
  Country: CN (occurrence: CN)
  Receive Date: 20240911
  Receipt Date: 20240911
  Transmission Date: 20241017
  Serious: Yes (Hospitalization)
  Sender: MERCK
  Company Number: CN-009507513-2409CHN002600

PATIENT
  Age: 74 Year
  Sex: Male
  Weight: 87 kg

DRUGS (2)
  1. KEYTRUDA [Suspect]
     Active Substance: PEMBROLIZUMAB
     Indication: Lung neoplasm malignant
     Dosage: 200 MG, Q3W
     Route: 041
     Dates: start: 20240730, end: 20240730
  2. SODIUM CHLORIDE [Concomitant]
     Active Substance: SODIUM CHLORIDE
     Indication: Lung neoplasm malignant
     Dosage: 100 ML, Q3W
     Route: 041
     Dates: start: 20240730, end: 20240730

REACTIONS (3)
  - Drug eruption [Recovering/Resolving]
  - Soft tissue infection [Recovering/Resolving]
  - Skin exfoliation [Recovering/Resolving]

NARRATIVE: CASE EVENT DATE: 20240822
